FAERS Safety Report 5399898-2 (Version None)
Quarter: 2007Q3

REPORT INFORMATION
  Report Type: 
  Country: None (occurrence: None)
  Receive Date: 20070724
  Receipt Date: 20070712
  Transmission Date: 20080115
  Serious: Yes (Hospitalization)
  Sender: FDA-Public Use
  Company Number: 02100-JPN-06-0176

PATIENT
  Age: 82 Year
  Sex: Female

DRUGS (6)
  1. CILOSTAZOL [Suspect]
     Indication: CEREBRAL INFARCTION
     Dosage: ONE OF 200 MG OR 75 MG ORAL
     Route: 048
     Dates: start: 20060123, end: 20060421
  2. CLOPIDOGREL [Suspect]
  3. ASPIRIN [Concomitant]
  4. ASPIRIN [Concomitant]
  5. CLINIDIPINE [Concomitant]
  6. ACECLOFENAC [Concomitant]

REACTIONS (4)
  - ASTHENIA [None]
  - DISEASE RECURRENCE [None]
  - HEMIPARESIS [None]
  - ISCHAEMIC STROKE [None]
